FAERS Safety Report 5205597-X (Version None)
Quarter: 2006Q4

REPORT INFORMATION
  Report Type: 
  Country: None (occurrence: None)
  Receive Date: 20061027
  Receipt Date: 20060817
  Transmission Date: 20070319
  Serious: No
  Sender: FDA-Public Use
  Company Number: POMP-10803

PATIENT
  Age: 10 Year
  Sex: Female
  Weight: 33.1126 kg

DRUGS (3)
  1. MYOZYME [Suspect]
     Indication: GLYCOGEN STORAGE DISEASE TYPE II
     Dosage: 25 MG/KG, Q2WKS; IV
     Route: 042
     Dates: start: 20060807, end: 20060821
  2. MYOZYME [Suspect]
     Indication: GLYCOGEN STORAGE DISEASE TYPE II
     Dosage: 20 MG/KG ONCE, IV
     Route: 042
     Dates: start: 20060724, end: 20060724
  3. ALPHA-GLUCOSIDASE (HUMAN, RECOMBINANT, CHO CELLS, GENZYME) [Suspect]
     Indication: GLYCOGEN STORAGE DISEASE TYPE II
     Dosage: 20 MG/KG Q2WKS; IV
     Route: 042
     Dates: start: 20031229, end: 20060701

REACTIONS (2)
  - BODY TEMPERATURE INCREASED [None]
  - FLUSHING [None]
